FAERS Safety Report 8255046-2 (Version None)
Quarter: 2012Q2

REPORT INFORMATION
  Report Type: 
  Country: None (occurrence: None)
  Receive Date: 20120403
  Receipt Date: 20120322
  Transmission Date: 20120825
  Serious: Yes (Other)
  Sender: FDA-Public Use
  Company Number: US-SANOFI-AVENTIS-2012SA019931

PATIENT
  Age: 78 Year
  Sex: Female

DRUGS (7)
  1. ALL OTHER THERAPEUTIC PRODUCTS [Concomitant]
     Indication: BLOOD PRESSURE
  2. METOPROLOL TARTRATE [Concomitant]
     Indication: BLOOD PRESSURE
  3. HUMALOG [Concomitant]
     Dosage: BEFORE MEALS
  4. LANTUS [Suspect]
     Indication: TYPE 2 DIABETES MELLITUS
     Dosage: DOSE:20 UNIT(S)
     Route: 058
     Dates: start: 20010101
  5. SOLOSTAR [Suspect]
     Indication: TYPE 2 DIABETES MELLITUS
     Dates: start: 20110101
  6. CARDIZEM [Concomitant]
     Indication: BLOOD PRESSURE
  7. HYDRALAZINE HCL [Concomitant]
     Indication: BLOOD PRESSURE

REACTIONS (10)
  - ATRIAL FIBRILLATION [None]
  - WEIGHT INCREASED [None]
  - CARDIAC FAILURE CONGESTIVE [None]
  - BLOOD GLUCOSE INCREASED [None]
  - SCIATICA [None]
  - HYPERTENSION [None]
  - RENAL FAILURE [None]
  - OSTEOARTHRITIS [None]
  - GLYCOSYLATED HAEMOGLOBIN INCREASED [None]
  - NERVE COMPRESSION [None]
